FAERS Safety Report 8340270-0 (Version None)
Quarter: 2012Q2

REPORT INFORMATION
  Report Type: 
  Country: None (occurrence: None)
  Receive Date: 20120507
  Receipt Date: 20120501
  Transmission Date: 20120825
  Serious: Yes (Hospitalization)
  Sender: FDA-Public Use
  Company Number: PHEH2012US009377

PATIENT
  Age: 74 Year
  Sex: Female

DRUGS (24)
  1. CRESTOR [Concomitant]
  2. PROTONIX [Concomitant]
  3. HUMALOG [Concomitant]
  4. ALLOPURINOL [Concomitant]
  5. TIMOLOL MALEATE [Concomitant]
  6. SOLIRIS [Concomitant]
     Indication: PAROXYSMAL NOCTURNAL HAEMOGLOBINURIA
     Dosage: 900 MG, EVERY TWO WEEKS
     Route: 042
     Dates: start: 20120228
  7. SOLIRIS [Concomitant]
     Dosage: 900 MG, EVERY TWO WEEKS
     Route: 042
     Dates: start: 20120313
  8. LASIX [Concomitant]
  9. CALCIUM WITH VITAMIN D [Concomitant]
  10. OXYCODONE HCL [Concomitant]
  11. SOLIRIS [Concomitant]
     Dosage: 900 MG, EVERY TWO WEEKS
     Route: 042
     Dates: start: 20120410
  12. NORVASC [Concomitant]
  13. ALPHAGAN [Concomitant]
  14. LISINOPRIL [Concomitant]
  15. EPOETIN ALFA [Concomitant]
  16. ATENOLOL [Concomitant]
  17. ASPIRIN [Concomitant]
  18. MULTI-VITAMIN [Concomitant]
  19. NITROGLYCERIN [Concomitant]
  20. TYLENOL (CAPLET) [Concomitant]
  21. EXJADE [Suspect]
     Indication: IRON OVERLOAD
     Route: 048
  22. GLIPIZIDE [Concomitant]
  23. LOVENOX [Concomitant]
  24. COMBIVENT [Concomitant]

REACTIONS (14)
  - MYOCARDIAL INFARCTION [None]
  - SUBCUTANEOUS ABSCESS [None]
  - INFECTION [None]
  - PLATELET COUNT DECREASED [None]
  - HAEMOGLOBIN DECREASED [None]
  - URINE COLOUR ABNORMAL [None]
  - HAEMATOCRIT DECREASED [None]
  - ACUTE MYOCARDIAL INFARCTION [None]
  - ABSCESS LIMB [None]
  - RED BLOOD CELL COUNT DECREASED [None]
  - ABDOMINAL PAIN [None]
  - URINARY TRACT INFECTION [None]
  - DIARRHOEA [None]
  - WHITE BLOOD CELL COUNT INCREASED [None]
